FAERS Safety Report 15274660 (Version 1)
Quarter: 2018Q3

REPORT INFORMATION
  Report Type: Spontaneous
  Country: ES (occurrence: ES)
  Receive Date: 20180814
  Receipt Date: 20180814
  Transmission Date: 20181010
  Serious: Yes (Other)
  Sender: FDA-Public Use
  Company Number: ES-AUROBINDO-AUR-APL-2017-47016

PATIENT
  Sex: Female

DRUGS (3)
  1. OLMESARTAN FILM COATED TABLETS [Suspect]
     Active Substance: OLMESARTAN
     Indication: PRODUCT USED FOR UNKNOWN INDICATION
  2. OLMESARTAN FILM COATED TABLETS [Suspect]
     Active Substance: OLMESARTAN
     Indication: HYPERTENSION
     Dosage: 1 UNK, QD
     Route: 048
  3. AMLODIPINE [Concomitant]
     Active Substance: AMLODIPINE BESYLATE
     Indication: HYPERTENSION
     Dosage: 1 UNK, QD
     Route: 065

REACTIONS (3)
  - Oligohydramnios [Recovered/Resolved]
  - Exposure during pregnancy [Recovered/Resolved]
  - Contraindicated product administered [Unknown]
